FAERS Safety Report 8595172-1 (Version None)
Quarter: 2012Q3

REPORT INFORMATION
  Report Type: 
  Country: None (occurrence: None)
  Receive Date: 20120815
  Receipt Date: 20070226
  Transmission Date: 20120928
  Serious: Yes (Other)
  Sender: FDA-Public Use
  Company Number: CO-PFIZER INC-2012196717

PATIENT
  Age: 55 Year
  Sex: Female

DRUGS (7)
  1. QUINAPRIL AND HYDROCHLOROTHIAZIDE [Suspect]
     Indication: HYPERTENSION
     Dosage: 20 MG/ 12.5  MG, 1X/DAY
  2. METFORMIN [Concomitant]
     Dosage: 850 MG, 2X/DAY
  3. NIFEDIPINE [Concomitant]
     Dosage: 30 MG, 2X/DAY
  4. OLMESARTAN MEDOXOMIL [Suspect]
     Indication: HYPERTENSION
     Dosage: 20 MG, 1X/DAY
  5. ACETYLSALICYLIC ACID [Concomitant]
     Dosage: 100 MG, 1X/DAY
  6. LIPITOR [Suspect]
     Indication: DYSLIPIDAEMIA
     Dosage: 10 MG, 1X/DAY
  7. METOPROLOL TARTRATE [Concomitant]
     Dosage: 50 MG, 2X/DAY

REACTIONS (2)
  - PALPITATIONS [None]
  - ASTHMA [None]
